FAERS Safety Report 25012010 (Version 1)
Quarter: 2025Q1

REPORT INFORMATION
  Report Type: Spontaneous
  Country: US (occurrence: US)
  Receive Date: 20250226
  Receipt Date: 20250226
  Transmission Date: 20250409
  Serious: No
  Sender: ZYDUS PHARM
  Company Number: US-CADILA HEALTHCARE LIMITED-US-ZYDUS-118732

PATIENT

DRUGS (3)
  1. ALLOPURINOL [Suspect]
     Active Substance: ALLOPURINOL
     Indication: Gout
     Route: 048
     Dates: start: 202412
  2. ALLOPURINOL [Suspect]
     Active Substance: ALLOPURINOL
     Route: 048
     Dates: start: 202411, end: 202412
  3. ALLOPURINOL [Suspect]
     Active Substance: ALLOPURINOL
     Route: 048
     Dates: start: 20240920, end: 202411

REACTIONS (2)
  - Prostatic specific antigen increased [Not Recovered/Not Resolved]
  - Gout [Unknown]

NARRATIVE: CASE EVENT DATE: 20241101
